FAERS Safety Report 11185346 (Version 1)
Quarter: 2015Q2

REPORT INFORMATION
  Report Type: Spontaneous
  Country: PE (occurrence: PE)
  Receive Date: 20150612
  Receipt Date: 20150612
  Transmission Date: 20150821
  Serious: Yes (Other)
  Sender: FDA-Public Use
  Company Number: PE-PFIZER INC-2015193576

PATIENT
  Age: 54 Year
  Sex: Male

DRUGS (1)
  1. CARDURA XL [Suspect]
     Active Substance: DOXAZOSIN MESYLATE
     Dosage: 4 MG, UNK

REACTIONS (3)
  - Speech disorder [Not Recovered/Not Resolved]
  - Deafness [Not Recovered/Not Resolved]
  - Cerebral infarction [Unknown]
